FAERS Safety Report 25966538 (Version 1)
Quarter: 2025Q4

REPORT INFORMATION
  Report Type: Spontaneous
  Country: US (occurrence: None)
  Receive Date: 20251028
  Receipt Date: 20251028
  Transmission Date: 20260118
  Serious: No
  Sender: UCB
  Company Number: US-UCBSA-2025032954

PATIENT

DRUGS (14)
  1. BIMZELX [Suspect]
     Active Substance: BIMEKIZUMAB-BKZX
     Indication: Hidradenitis
     Dosage: 320 MILLIGRAM, EV 2 WEEKS(QOW)
  2. ALBUTEROL SU AER 108 [Concomitant]
     Indication: Product used for unknown indication
     Dosage: SU AER 108 (90
  3. ATORVASTATIN [Concomitant]
     Active Substance: ATORVASTATIN
     Indication: Product used for unknown indication
     Dosage: 20MG
  4. BREZTRI [Concomitant]
     Active Substance: BUDESONIDE\FORMOTEROL\GLYCOPYRROLATE
     Indication: Product used for unknown indication
     Dosage: AERO AER 160-9-4.
  5. CITALOPRAM H [Concomitant]
     Indication: Product used for unknown indication
     Dosage: 40MG
  6. CLOZAPINE [Concomitant]
     Active Substance: CLOZAPINE
     Indication: Product used for unknown indication
     Dosage: 100MG
  7. DEPAKOTE [Concomitant]
     Active Substance: DIVALPROEX SODIUM
     Indication: Product used for unknown indication
     Dosage: 500MG
  8. DIAZEPAM [Concomitant]
     Active Substance: DIAZEPAM
     Indication: Product used for unknown indication
     Dosage: 10MG
  9. MONTELUKAST [Concomitant]
     Active Substance: MONTELUKAST
     Indication: Product used for unknown indication
     Dosage: 10MG
  10. MULTI-VITAMI [Concomitant]
     Indication: Product used for unknown indication
  11. OMEPRAZOLE [Concomitant]
     Active Substance: OMEPRAZOLE
     Indication: Product used for unknown indication
     Dosage: CPD 40MG
  12. TRAZODONE HC [Concomitant]
     Indication: Product used for unknown indication
     Dosage: 100MG
  13. VITAMIN B12 TBC [Concomitant]
     Indication: Product used for unknown indication
     Dosage: TBC 1000MCG
  14. XYZAL ALLERG [Concomitant]
     Indication: Product used for unknown indication
     Dosage: 5 MG

REACTIONS (5)
  - Oropharyngeal pain [Not Recovered/Not Resolved]
  - Oral pain [Not Recovered/Not Resolved]
  - Hidradenitis [Not Recovered/Not Resolved]
  - Gingival swelling [Recovering/Resolving]
  - Tongue coated [Recovering/Resolving]
